FAERS Safety Report 6301960-4 (Version None)
Quarter: 2009Q3

REPORT INFORMATION
  Report Type: 
  Country: None (occurrence: None)
  Receive Date: 20090805
  Receipt Date: 20090722
  Transmission Date: 20100115
  Serious: Yes (Other)
  Sender: FDA-Public Use
  Company Number: DE-1170333

PATIENT
  Age: 67 Year
  Sex: Male

DRUGS (1)
  1. FLUORESCEIN SODIUM (FLUORESCEIN SODIUM) 10 % INJECTION LOT# 160840F SO [Suspect]
     Dosage: INTRAVENOUS BOLUS
     Route: 040
     Dates: start: 20090721

REACTIONS (5)
  - BLOOD PRESSURE DECREASED [None]
  - DIZZINESS [None]
  - GRAND MAL CONVULSION [None]
  - PULSE PRESSURE DECREASED [None]
  - UNRESPONSIVE TO STIMULI [None]
